FAERS Safety Report 7495761-1 (Version None)
Quarter: 2011Q2

REPORT INFORMATION
  Report Type: 
  Country: None (occurrence: None)
  Receive Date: 20110523
  Receipt Date: 20110513
  Transmission Date: 20111010
  Serious: Yes (Life-Threatening)
  Sender: FDA-Public Use
  Company Number: GB-ELI_LILLY_AND_COMPANY-GB201105003650

PATIENT
  Age: 53 Year
  Sex: Female
  Weight: 73 kg

DRUGS (13)
  1. DULOXETINE HYDROCHLORIDE [Suspect]
     Indication: NEUROPATHY PERIPHERAL
     Dosage: 30 MG, UNKNOWN
     Route: 048
     Dates: start: 20110307
  2. CYCLIZINE [Concomitant]
  3. SENNA-MINT WAF [Concomitant]
  4. KETAMINE HYDROCHLORIDE [Concomitant]
  5. DURAGESIC [Concomitant]
  6. DEXAMETHASONE [Concomitant]
  7. LANSOPRAZOLE [Concomitant]
  8. PREGABALIN [Concomitant]
  9. DULOXETINE HYDROCHLORIDE [Suspect]
     Dosage: 60 MG, UNKNOWN
     Route: 048
     Dates: end: 20110317
  10. FERROUS FUMARATE [Concomitant]
  11. NAPROXEN [Concomitant]
  12. ACETAMINOPHEN [Concomitant]
  13. HALOPERIDOL [Concomitant]

REACTIONS (7)
  - BLOOD BILIRUBIN INCREASED [None]
  - ALANINE AMINOTRANSFERASE INCREASED [None]
  - MALAISE [None]
  - ASPARTATE AMINOTRANSFERASE INCREASED [None]
  - BLOOD ALBUMIN INCREASED [None]
  - BLOOD ALKALINE PHOSPHATASE INCREASED [None]
  - GAMMA-GLUTAMYLTRANSFERASE INCREASED [None]
